FAERS Safety Report 9211057 (Version 2)
Quarter: 2013Q2

REPORT INFORMATION
  Report Type: Report from Study
  Country: US (occurrence: US)
  Receive Date: 20130404
  Receipt Date: 20130411
  Transmission Date: 20140414
  Serious: Yes (Hospitalization, Other)
  Sender: FDA-Public Use
  Company Number: US-ACTELION-A-US2013-81631

PATIENT
  Age: 73 Year
  Sex: Female

DRUGS (3)
  1. TRACLEER [Suspect]
     Indication: PULMONARY ARTERIAL HYPERTENSION
     Dosage: UNK
     Route: 048
  2. VENTAVIS [Suspect]
     Indication: PULMONARY ARTERIAL HYPERTENSION
     Dosage: UNK
     Route: 055
  3. COUMADIN [Concomitant]

REACTIONS (7)
  - Acute myocardial infarction [Recovering/Resolving]
  - Anaemia [Recovering/Resolving]
  - Blood glucose increased [Recovering/Resolving]
  - Fluid retention [Unknown]
  - Wheezing [Unknown]
  - Drug dose omission [Unknown]
  - Troponin increased [Recovering/Resolving]
